FAERS Safety Report 4285823-4 (Version None)
Quarter: 2004Q1

REPORT INFORMATION
  Report Type: 
  Country: None (occurrence: None)
  Receive Date: 20040203
  Receipt Date: 20040121
  Transmission Date: 20041129
  Serious: Yes (Death, Other)
  Sender: FDA-Public Use
  Company Number: USA-2004-0012480

PATIENT
  Age: 44 Year
  Sex: Male

DRUGS (1)
  1. OXYCONTIN [Suspect]

REACTIONS (2)
  - DRUG ABUSER [None]
  - VICTIM OF HOMICIDE [None]
